FAERS Safety Report 10230653 (Version 1)
Quarter: 2014Q2

REPORT INFORMATION
  Report Type: Spontaneous
  Country: US (occurrence: US)
  Receive Date: 20140611
  Receipt Date: 20140611
  Transmission Date: 20141212
  Serious: No
  Sender: FDA-Public Use
  Company Number: US-B.I. PHARMACEUTICALS,INC./RIDGEFIELD-2014-BI-24568BP

PATIENT
  Age: 83 Year
  Sex: Male
  Weight: 66 kg

DRUGS (5)
  1. PRADAXA [Suspect]
     Indication: ATRIAL FIBRILLATION
     Dosage: 300 MG
     Route: 048
     Dates: start: 201309
  2. CRESTOR [Concomitant]
     Indication: BLOOD CHOLESTEROL INCREASED
     Dosage: 5 MG
     Route: 048
  3. DILTIAZEM SR [Concomitant]
     Indication: HYPERTENSION
     Dosage: 420 MG
     Route: 048
  4. DIOVAN [Concomitant]
     Indication: HYPERTENSION
     Dosage: 320 MG
     Route: 048
  5. FUROSEMIDE [Concomitant]
     Dosage: 20 MG
     Route: 048

REACTIONS (1)
  - Scab [Not Recovered/Not Resolved]
